FAERS Safety Report 13335394 (Version 1)
Quarter: 2017Q1

REPORT INFORMATION
  Report Type: Spontaneous
  Country: US (occurrence: US)
  Receive Date: 20170314
  Receipt Date: 20170314
  Transmission Date: 20170428
  Serious: No
  Sender: FDA-Public Use
  Company Number: US-ASTRAZENECA-2017SE26109

PATIENT

DRUGS (1)
  1. LYNPARZA [Suspect]
     Active Substance: OLAPARIB
     Dosage: FOUR 50 MG PILLS THIS MORNING
     Route: 048

REACTIONS (3)
  - Intentional product misuse [Unknown]
  - Generalised erythema [Unknown]
  - Pruritus [Unknown]
